FAERS Safety Report 6636778-6 (Version None)
Quarter: 2010Q1

REPORT INFORMATION
  Report Type: 
  Country: None (occurrence: None)
  Receive Date: 20100316
  Receipt Date: 20100308
  Transmission Date: 20100710
  Serious: Yes (Other)
  Sender: FDA-Public Use
  Company Number: TH-ROCHE-689896

PATIENT
  Sex: Female
  Weight: 1.5 kg

DRUGS (1)
  1. OSELTAMIVIR PHOSPHATE [Suspect]
     Dosage: DAILY DOSE: 4 MG/KG PER DAY
     Route: 065

REACTIONS (1)
  - RENAL FAILURE ACUTE [None]
